FAERS Safety Report 12228595 (Version 1)
Quarter: 2016Q2

REPORT INFORMATION
  Report Type: Spontaneous
  Country: GB (occurrence: GB)
  Receive Date: 20160401
  Receipt Date: 20160401
  Transmission Date: 20160815
  Serious: Yes (Other)
  Sender: FDA-Public Use
  Company Number: GB-WATSON-2016-06342

PATIENT
  Age: 61 Year
  Sex: Female
  Weight: 53.97 kg

DRUGS (2)
  1. BETMIGA [Interacting]
     Active Substance: MIRABEGRON
     Indication: MICTURITION URGENCY
     Dosage: 50 MG, DAILY
     Route: 048
     Dates: start: 20160108, end: 20160218
  2. FLUOXETINE [Suspect]
     Active Substance: FLUOXETINE HYDROCHLORIDE
     Indication: PRODUCT USED FOR UNKNOWN INDICATION
     Dosage: 20 MG, UNK
     Route: 065

REACTIONS (3)
  - Anxiety [Recovered/Resolved]
  - Panic reaction [Recovered/Resolved]
  - Drug interaction [Recovered/Resolved]
